FAERS Safety Report 20931029 (Version 1)
Quarter: 2022Q2

REPORT INFORMATION
  Report Type: Spontaneous
  Country: US (occurrence: None)
  Receive Date: 20220607
  Receipt Date: 20220607
  Transmission Date: 20220721
  Serious: Yes (Life-Threatening, Hospitalization, Disabling, Other)
  Sender: FDA-Public Use
  Company Number: None

PATIENT
  Age: 57 Year
  Sex: Female
  Weight: 68.04 kg

DRUGS (1)
  1. ZOLOFT [Suspect]
     Active Substance: SERTRALINE HYDROCHLORIDE

REACTIONS (11)
  - Suicidal ideation [None]
  - Intentional overdose [None]
  - Fall [None]
  - Compartment syndrome [None]
  - Suicide attempt [None]
  - Nerve injury [None]
  - Thrombosis [None]
  - Dialysis [None]
  - Renal failure [None]
  - Hepatic failure [None]
  - Hallucination [None]
